FAERS Safety Report 9849182 (Version 1)
Quarter: 2014Q1

REPORT INFORMATION
  Report Type: Report from Study
  Country: US (occurrence: US)
  Receive Date: 20140128
  Receipt Date: 20140128
  Transmission Date: 20141002
  Serious: No
  Sender: FDA-Public Use
  Company Number: US-ABBVIE-13P-163-1056600-00

PATIENT
  Age: 60 Year
  Sex: Male

DRUGS (3)
  1. LUPRON DEPOT [Suspect]
     Indication: PROSTATE CANCER
     Dates: start: 201301
  2. TAXOTERE [Concomitant]
     Indication: PROSTATE CANCER
  3. INVANZ [Concomitant]

REACTIONS (1)
  - Peritonsillar abscess [Not Recovered/Not Resolved]
